FAERS Safety Report 5514219-X (Version None)
Quarter: 2007Q4

REPORT INFORMATION
  Report Type: 
  Country: None (occurrence: None)
  Receive Date: 20071113
  Receipt Date: 20071106
  Transmission Date: 20080405
  Serious: Yes (Hospitalization)
  Sender: FDA-Public Use
  Company Number: MX-ASTRAZENECA-2007UW26140

PATIENT
  Age: 688 Month
  Sex: Female
  Weight: 64 kg

DRUGS (1)
  1. LOSEC A [Suspect]
     Dosage: ONE TABLET DAILY
     Route: 048
     Dates: start: 20070923, end: 20070923

REACTIONS (2)
  - DIARRHOEA HAEMORRHAGIC [None]
  - HAEMATEMESIS [None]
